FAERS Safety Report 4943980-8 (Version None)
Quarter: 2006Q1

REPORT INFORMATION
  Report Type: 
  Country: None (occurrence: None)
  Receive Date: 20060313
  Receipt Date: 20060313
  Transmission Date: 20060701
  Serious: Yes (Other)
  Sender: FDA-Public Use
  Company Number: None

PATIENT
  Age: 66 Year
  Sex: Male

DRUGS (3)
  1. PROPAFENONE HCL [Suspect]
     Dates: start: 19950501, end: 20040924
  2. DIOVAN [Concomitant]
  3. ACIPHEX [Concomitant]

REACTIONS (6)
  - BLOOD IRON INCREASED [None]
  - CHOLESTASIS [None]
  - DISEASE RECURRENCE [None]
  - HEPATIC STEATOSIS [None]
  - JAUNDICE [None]
  - TRANSFERRIN SATURATION INCREASED [None]
